FAERS Safety Report 6401520-0 (Version None)
Quarter: 2009Q4

REPORT INFORMATION
  Report Type: 
  Country: None (occurrence: None)
  Receive Date: 20091013
  Receipt Date: 20091013
  Transmission Date: 20100525
  Serious: Yes (Other)
  Sender: FDA-Public Use
  Company Number: None

PATIENT
  Age: 70 Year
  Sex: Male
  Weight: 104.3273 kg

DRUGS (2)
  1. CIPROFLOXACIN [Suspect]
     Indication: CELLULITIS
     Dosage: 500MG TWICE A DAY
     Dates: start: 20091008, end: 20091010
  2. SULFAMETHOXAZOLE AND TRIMETHOPRIM [Suspect]
     Dosage: 160-800MG ONCE A DAY
     Dates: start: 20091008, end: 20091010

REACTIONS (5)
  - FATIGUE [None]
  - HEADACHE [None]
  - LETHARGY [None]
  - MUSCULOSKELETAL STIFFNESS [None]
  - NECK PAIN [None]
